FAERS Safety Report 21332392 (Version 2)
Quarter: 2022Q3

REPORT INFORMATION
  Report Type: Spontaneous
  Country: SK (occurrence: SK)
  Receive Date: 20220914
  Receipt Date: 20220928
  Transmission Date: 20221026
  Serious: Yes (Other)
  Sender: FDA-Public Use
  Company Number: SK-BAYER-2022A127996

PATIENT
  Age: 85 Year
  Sex: Male

DRUGS (28)
  1. EYLEA [Suspect]
     Active Substance: AFLIBERCEPT
     Indication: Age-related macular degeneration
     Dosage: 1 DF, Q4WK, 15 APPLICATIONS IN TOTAL; SOLUTION FOR INJECTION, STRENGTH: 40MG/ML
     Route: 031
     Dates: start: 20180613, end: 20220412
  2. EYLEA [Suspect]
     Active Substance: AFLIBERCEPT
     Dosage: 1 DF, ONCE; SOLUTION FOR INJECTION, STRENGTH: STRENGTH: 40MG/ML
     Route: 031
     Dates: start: 20180613, end: 20180613
  3. EYLEA [Suspect]
     Active Substance: AFLIBERCEPT
     Dosage: 1 DF, ONCE; SOLUTION FOR INJECTION, STRENGTH: STRENGTH: 40MG/ML
     Route: 031
     Dates: start: 20180712, end: 20180712
  4. EYLEA [Suspect]
     Active Substance: AFLIBERCEPT
     Dosage: 1 DF, ONCE; SOLUTION FOR INJECTION, STRENGTH: STRENGTH: 40MG/ML
     Route: 031
     Dates: start: 20180814, end: 20180814
  5. EYLEA [Suspect]
     Active Substance: AFLIBERCEPT
     Dosage: 1 DF, ONCE; SOLUTION FOR INJECTION, STRENGTH: STRENGTH: 40MG/ML
     Route: 031
     Dates: start: 20181010, end: 20181010
  6. EYLEA [Suspect]
     Active Substance: AFLIBERCEPT
     Dosage: 1 DF, ONCE; SOLUTION FOR INJECTION, STRENGTH: STRENGTH: 40MG/ML
     Route: 031
     Dates: start: 20181121, end: 20181121
  7. EYLEA [Suspect]
     Active Substance: AFLIBERCEPT
     Dosage: 1 DF, ONCE; SOLUTION FOR INJECTION, STRENGTH: STRENGTH: 40MG/ML
     Route: 031
     Dates: start: 20190116, end: 20190116
  8. EYLEA [Suspect]
     Active Substance: AFLIBERCEPT
     Dosage: 1 DF, ONCE; SOLUTION FOR INJECTION, STRENGTH: STRENGTH: 40MG/ML
     Route: 031
     Dates: start: 20190313, end: 20190313
  9. EYLEA [Suspect]
     Active Substance: AFLIBERCEPT
     Dosage: 1 DF, ONCE; SOLUTION FOR INJECTION, STRENGTH: STRENGTH: 40MG/ML
     Route: 031
     Dates: start: 20190509, end: 20190509
  10. EYLEA [Suspect]
     Active Substance: AFLIBERCEPT
     Dosage: 1 DF, ONCE; SOLUTION FOR INJECTION, STRENGTH: STRENGTH: 40MG/ML
     Route: 031
     Dates: start: 20190620, end: 20190620
  11. EYLEA [Suspect]
     Active Substance: AFLIBERCEPT
     Dosage: 1 DF, ONCE; SOLUTION FOR INJECTION, STRENGTH: STRENGTH: 40MG/ML
     Route: 031
     Dates: start: 20190806, end: 20190806
  12. EYLEA [Suspect]
     Active Substance: AFLIBERCEPT
     Dosage: 1 DF, ONCE; SOLUTION FOR INJECTION, STRENGTH:STRENGTH: 40MG/ML
     Route: 031
     Dates: start: 20191002, end: 20191002
  13. EYLEA [Suspect]
     Active Substance: AFLIBERCEPT
     Dosage: 1 DF, ONCE; SOLUTION FOR INJECTION, STRENGTH:STRENGTH: 40MG/ML
     Route: 031
     Dates: start: 20191113, end: 20191113
  14. EYLEA [Suspect]
     Active Substance: AFLIBERCEPT
     Dosage: 1 DF, ONCE; SOLUTION FOR INJECTION, STRENGTH: 40MG/ML
     Route: 031
     Dates: start: 20200130, end: 20200130
  15. EYLEA [Suspect]
     Active Substance: AFLIBERCEPT
     Dosage: 1 DF, ONCE; SOLUTION FOR INJECTION, STRENGTH: STRENGTH: 40MG/ML
     Route: 031
     Dates: start: 20200227, end: 20200227
  16. EYLEA [Suspect]
     Active Substance: AFLIBERCEPT
     Dosage: 1 DF, ONCE; SOLUTION FOR INJECTION, STRENGTH: STRENGTH: 40MG/ML
     Route: 031
     Dates: start: 20210128, end: 20210128
  17. EYLEA [Suspect]
     Active Substance: AFLIBERCEPT
     Dosage: 1 DF, ONCE; SOLUTION FOR INJECTION, STRENGTH:STRENGTH: 40MG/ML
     Route: 031
     Dates: start: 20210302, end: 20210302
  18. EYLEA [Suspect]
     Active Substance: AFLIBERCEPT
     Dosage: 1 DF, ONCE; SOLUTION FOR INJECTION, STRENGTH: STRENGTH: 40MG/ML
     Route: 031
     Dates: start: 20210330, end: 20210330
  19. EYLEA [Suspect]
     Active Substance: AFLIBERCEPT
     Dosage: 1 DF, ONCE; SOLUTION FOR INJECTION, STRENGTH: STRENGTH: 40MG/ML
     Route: 031
     Dates: start: 20210506, end: 20210506
  20. EYLEA [Suspect]
     Active Substance: AFLIBERCEPT
     Dosage: 1 DF, ONCE; SOLUTION FOR INJECTION, STRENGTH: STRENGTH: 40MG/ML
     Route: 031
     Dates: start: 20210617, end: 20210617
  21. EYLEA [Suspect]
     Active Substance: AFLIBERCEPT
     Dosage: 1 DF, ONCE; SOLUTION FOR INJECTION, STRENGTH:STRENGTH: 40MG/ML
     Route: 031
     Dates: start: 20210729, end: 20210729
  22. EYLEA [Suspect]
     Active Substance: AFLIBERCEPT
     Dosage: 1 DF, ONCE; SOLUTION FOR INJECTION, STRENGTH: STRENGTH: 40MG/ML
     Route: 031
     Dates: start: 20211207, end: 20211207
  23. EYLEA [Suspect]
     Active Substance: AFLIBERCEPT
     Dosage: 1 DF, ONCE; SOLUTION FOR INJECTION, STRENGTH:STRENGTH: 40MG/ML
     Route: 031
     Dates: start: 20220201, end: 20220201
  24. EYLEA [Suspect]
     Active Substance: AFLIBERCEPT
     Dosage: 1 DF, ONCE; SOLUTION FOR INJECTION, STRENGTH: STRENGTH: 40MG/ML
     Route: 031
     Dates: start: 20220201, end: 20220201
  25. EYLEA [Suspect]
     Active Substance: AFLIBERCEPT
     Dosage: 1 DF, ONCE; SOLUTION FOR INJECTION, STRENGTH: STRENGTH: 40MG/ML
     Route: 031
     Dates: start: 20220412, end: 20220412
  26. EYLEA [Suspect]
     Active Substance: AFLIBERCEPT
     Dosage: 1 DF, ONCE; SOLUTION FOR INJECTION, STRENGTH: STRENGTH: 40MG/ML
     Route: 031
     Dates: start: 20220615, end: 20220615
  27. INSULIN NOS [Concomitant]
     Active Substance: INSULIN NOS
     Indication: Product used for unknown indication
  28. OTHER DRUGS USED IN DIABETES [Concomitant]
     Indication: Type 2 diabetes mellitus

REACTIONS (2)
  - Retinal haemorrhage [Recovered/Resolved with Sequelae]
  - Age-related macular degeneration [Unknown]

NARRATIVE: CASE EVENT DATE: 20201228
